FAERS Safety Report 9458891 (Version 2)
Quarter: 2013Q3

REPORT INFORMATION
  Report Type: Report from Study
  Country: AU (occurrence: AU)
  Receive Date: 20130814
  Receipt Date: 20130821
  Transmission Date: 20140515
  Serious: Yes (Hospitalization)
  Sender: FDA-Public Use
  Company Number: AU-GLAXOSMITHKLINE-B0905264B

PATIENT
  Age: 76 Year
  Sex: Male
  Weight: 71.2 kg

DRUGS (4)
  1. DABRAFENIB [Suspect]
     Indication: METASTATIC MALIGNANT MELANOMA
     Dosage: 150MG TWICE PER DAY
     Route: 048
     Dates: start: 20130429
  2. PANTOPRAZOLE [Concomitant]
     Indication: ILL-DEFINED DISORDER
     Dosage: 40MG PER DAY
     Route: 048
  3. ATENOLOL [Concomitant]
     Indication: HYPERTENSION
     Dosage: 50MG PER DAY
     Route: 048
  4. PRAZOSIN [Concomitant]
     Indication: HYPERTENSION
     Dosage: 1MG TWICE PER DAY
     Route: 048

REACTIONS (1)
  - Liver function test abnormal [Recovered/Resolved]
